FAERS Safety Report 10716166 (Version 1)
Quarter: 2015Q1

REPORT INFORMATION
  Report Type: Spontaneous
  Country: US (occurrence: None)
  Receive Date: 20150109
  Receipt Date: 20150109
  Transmission Date: 20150721
  Serious: Yes (Other)
  Sender: FDA-Public Use
  Company Number: 2014PROUSA03807

PATIENT
  Age: 68 Year
  Sex: Male
  Weight: 78.4 kg

DRUGS (1)
  1. PROVENGE [Suspect]
     Active Substance: SIPULEUCEL-T
     Indication: PROSTATE CANCER METASTATIC
     Dosage: 250 ML, SINGLE, INTRAVENOUS
     Route: 042
     Dates: start: 20140522, end: 20140522

REACTIONS (3)
  - Procedural pain [None]
  - Bladder transitional cell carcinoma [None]
  - Hypertension [None]

NARRATIVE: CASE EVENT DATE: 20140529
